FAERS Safety Report 8333613-5 (Version None)
Quarter: 2012Q2

REPORT INFORMATION
  Report Type: 
  Country: None (occurrence: None)
  Receive Date: 20120503
  Receipt Date: 20101203
  Transmission Date: 20120825
  Serious: No
  Sender: FDA-Public Use
  Company Number: US-TEVA-2010006300

PATIENT
  Sex: Male

DRUGS (3)
  1. NUVIGIL [Suspect]
     Indication: SLEEP APNOEA SYNDROME
     Dosage: 150 MILLIGRAM;
     Route: 048
     Dates: start: 20100801
  2. AVAPRO [Concomitant]
  3. NUVIGIL [Suspect]
     Indication: NARCOLEPSY
     Dosage: 75 MILLIGRAM;
     Route: 048
     Dates: start: 20100101, end: 20100801

REACTIONS (1)
  - PRURITUS [None]
